FAERS Safety Report 5284241-X (Version None)
Quarter: 2007Q1

REPORT INFORMATION
  Report Type: 
  Country: None (occurrence: None)
  Receive Date: 20070328
  Receipt Date: 20070312
  Transmission Date: 20070707
  Serious: Yes (Death)
  Sender: FDA-Public Use
  Company Number: 106

PATIENT
  Sex: Male

DRUGS (1)
  1. FAZACLO ODT [Suspect]
     Indication: SCHIZOPHRENIA
     Dosage: 1000 MG PO DAILY
     Route: 048
     Dates: start: 20060902, end: 20070308

REACTIONS (5)
  - CARDIAC ARREST [None]
  - CONVULSION [None]
  - DRUG TOXICITY [None]
  - HAEMATEMESIS [None]
  - TACHYCARDIA [None]
